FAERS Safety Report 4641908-1 (Version None)
Quarter: 2005Q2

REPORT INFORMATION
  Report Type: 
  Country: None (occurrence: None)
  Receive Date: 20050421
  Receipt Date: 20050408
  Transmission Date: 20051028
  Serious: Yes (Other)
  Sender: FDA-Public Use
  Company Number: 2004116483

PATIENT
  Age: 66 Year
  Sex: Male

DRUGS (3)
  1. CELEBREX [Suspect]
     Indication: OSTEOARTHRITIS
     Dosage: 400 MG (200 MG, 2 IN 1 D), ORAL
     Route: 048
     Dates: start: 20020523, end: 20041110
  2. PANTOPRAZOLE (PANTOPRAZOLE) [Concomitant]
  3. ATORVASTATIN CALCIUM [Concomitant]

REACTIONS (4)
  - CONDITION AGGRAVATED [None]
  - GASTRIC DISORDER [None]
  - GASTRITIS [None]
  - GASTROOESOPHAGEAL REFLUX DISEASE [None]
